FAERS Safety Report 8214264-X (Version None)
Quarter: 2012Q1

REPORT INFORMATION
  Report Type: 
  Country: None (occurrence: None)
  Receive Date: 20120316
  Receipt Date: 20120305
  Transmission Date: 20120608
  Serious: Yes (Hospitalization, Other)
  Sender: FDA-Public Use
  Company Number: HR-JNJFOC-20120304241

PATIENT
  Age: 20 Year
  Sex: Male

DRUGS (12)
  1. RISPERIDONE [Suspect]
     Indication: SCHIZOPHRENIA
     Route: 030
     Dates: start: 20070101
  2. DIAZEPAM [Suspect]
     Dosage: 5,5,10 MG
     Route: 065
     Dates: start: 20070101
  3. XANAX [Suspect]
     Indication: ACUTE PSYCHOSIS
     Route: 065
     Dates: start: 20010801
  4. VENLAFAXINE [Suspect]
     Indication: SCHIZOPHRENIA
     Route: 065
     Dates: start: 20070101
  5. RISPERIDONE [Suspect]
     Indication: ACUTE PSYCHOSIS
     Route: 048
  6. AKINETON [Suspect]
     Indication: ACUTE PSYCHOSIS
     Route: 065
     Dates: start: 20070101
  7. XANAX [Suspect]
     Route: 065
     Dates: start: 20070101
  8. XANAX [Suspect]
     Route: 065
     Dates: start: 20070401
  9. RISPERIDONE [Suspect]
     Dosage: 5 MG (2,0,3MG), FROM AUG 2001;  6 MG IN THE EVENING, FROM THE END OF 2001  4-6 MG/DAY,FROM 2002-2004
     Route: 048
     Dates: start: 20010801
  10. RISPERIDONE [Suspect]
     Route: 030
     Dates: start: 20070101
  11. DIAZEPAM [Suspect]
     Indication: ACUTE PSYCHOSIS
     Route: 065
     Dates: start: 20010801
  12. AKINETON [Suspect]
     Route: 065
     Dates: start: 20010801

REACTIONS (7)
  - SCHIZOPHRENIA [None]
  - INSOMNIA [None]
  - WEIGHT INCREASED [None]
  - TREATMENT NONCOMPLIANCE [None]
  - PSYCHOTIC DISORDER [None]
  - FATIGUE [None]
  - DRUG DOSE OMISSION [None]
